FAERS Safety Report 20349168 (Version 2)
Quarter: 2022Q1

REPORT INFORMATION
  Report Type: Spontaneous
  Country: US (occurrence: US)
  Receive Date: 20220119
  Receipt Date: 20220125
  Transmission Date: 20220423
  Serious: No
  Sender: FDA-Public Use
  Company Number: US-UNITED THERAPEUTICS-UNT-2021-026639

PATIENT
  Age: 70 Year
  Sex: Female
  Weight: 108.84 kg

DRUGS (4)
  1. TYVASO [Suspect]
     Active Substance: TREPROSTINIL
     Indication: Pulmonary arterial hypertension
     Dosage: UNK
     Dates: start: 20211206
  2. TYVASO [Suspect]
     Active Substance: TREPROSTINIL
     Dosage: 18-72 ?G, QID
     Dates: start: 202112
  3. TYVASO [Suspect]
     Active Substance: TREPROSTINIL
     Dosage: UNK
  4. AMLODIPINE [Concomitant]
     Active Substance: AMLODIPINE BESYLATE
     Indication: Product used for unknown indication
     Dosage: UNK
     Route: 065

REACTIONS (7)
  - COVID-19 [Unknown]
  - Oropharyngeal pain [Unknown]
  - Dyspnoea [Unknown]
  - Rhinorrhoea [Unknown]
  - Pain [Unknown]
  - Muscle strain [Unknown]
  - Musculoskeletal chest pain [Unknown]

NARRATIVE: CASE EVENT DATE: 20211201
